FAERS Safety Report 23449589 (Version 4)
Quarter: 2024Q1

REPORT INFORMATION
  Report Type: Spontaneous
  Country: JP (occurrence: JP)
  Receive Date: 20240129
  Receipt Date: 20240219
  Transmission Date: 20240410
  Serious: Yes (Death, Hospitalization, Other)
  Sender: FDA-Public Use
  Company Number: JP-NOVOPROD-1165323

PATIENT
  Age: 70 Year
  Sex: Male
  Weight: 55 kg

DRUGS (4)
  1. TRESIBA [Suspect]
     Active Substance: INSULIN DEGLUDEC
     Indication: Type 1 diabetes mellitus
     Dosage: 8 IU, QD
     Route: 058
  2. PEMBROLIZUMAB [Concomitant]
     Active Substance: PEMBROLIZUMAB
     Indication: Squamous cell carcinoma
     Dosage: UNK
     Route: 042
  3. NOVORAPID [Suspect]
     Active Substance: INSULIN ASPART
     Dosage: 6UNITS
     Dates: start: 20230630
  4. NOVORAPID [Suspect]
     Active Substance: INSULIN ASPART
     Indication: Type 1 diabetes mellitus
     Dosage: 24 IU, QD
     Route: 058

REACTIONS (5)
  - Sudden death [Fatal]
  - Road traffic accident [Unknown]
  - Hypoglycaemia [Recovered/Resolved]
  - Hyperglycaemia [Unknown]
  - Hypoglycaemia [Unknown]

NARRATIVE: CASE EVENT DATE: 20230630
